FAERS Safety Report 9648567 (Version 1)
Quarter: 2013Q4

REPORT INFORMATION
  Report Type: Spontaneous
  Country: MX (occurrence: None)
  Receive Date: 20131024
  Receipt Date: 20131024
  Transmission Date: 20140711
  Serious: Yes (Death)
  Sender: FDA-Public Use
  Company Number: 2013ST000250

PATIENT
  Sex: Male

DRUGS (2)
  1. ZEGERID [Suspect]
  2. AVODART [Suspect]

REACTIONS (1)
  - Death [None]
